FAERS Safety Report 17080939 (Version 1)
Quarter: 2019Q4

REPORT INFORMATION
  Report Type: Spontaneous
  Country: US (occurrence: US)
  Receive Date: 20191127
  Receipt Date: 20191127
  Transmission Date: 20200122
  Serious: Yes (Other)
  Sender: FDA-Public Use
  Company Number: US-PFIZER INC-2019506008

PATIENT

DRUGS (2)
  1. GLUTEN [Suspect]
     Active Substance: WHEAT GLUTEN
  2. ADVIL LIQUI-GELS [Suspect]
     Active Substance: IBUPROFEN
     Dosage: UNK

REACTIONS (4)
  - Coeliac disease [Unknown]
  - Product label issue [Unknown]
  - Reaction to excipient [Unknown]
  - Condition aggravated [Unknown]
